FAERS Safety Report 8791950 (Version 1)
Quarter: 2012Q4

REPORT INFORMATION
  Report Type: 
  Country: US (occurrence: US)
  Receive Date: 20120918
  Receipt Date: 20120918
  Transmission Date: 20130627
  Serious: No
  Sender: FDA-Public Use
  Company Number: US-COVIDIEN/TYCO HEALTHCARE/MALLINCKRODT-T201203403

PATIENT
  Sex: Female

DRUGS (5)
  1. EXALGO EXTENDED RELEASE [Suspect]
     Indication: PAIN
     Dosage: Two 16 mg tablets once in the morning
     Dates: start: 201208
  2. EXALGO EXTENDED RELEASE [Suspect]
     Dosage: One 16 mg tablet in morning, one 16 mg tablet at night
  3. EXALGO EXTENDED RELEASE [Suspect]
     Dosage: Two 16 mg tablets in morning and two 16 tablets at night
  4. FENTANYL [Concomitant]
     Indication: PAIN
     Dosage: 125 mcg
     Route: 062
     Dates: end: 20120817
  5. HYDROMORPHONE [Concomitant]
     Indication: BREAKTHROUGH PAIN
     Dosage: 4 mg two to three times daily

REACTIONS (3)
  - Inappropriate schedule of drug administration [Unknown]
  - Intentional drug misuse [Unknown]
  - Drug ineffective [Unknown]
